FAERS Safety Report 4711193-0 (Version None)
Quarter: 2005Q3

REPORT INFORMATION
  Report Type: 
  Country: None (occurrence: None)
  Receive Date: 20050708
  Receipt Date: 20050628
  Transmission Date: 20060218
  Serious: Yes (Other)
  Sender: FDA-Public Use
  Company Number: GB-2005-007398

PATIENT
  Age: 27 Year
  Sex: Female

DRUGS (1)
  1. MIRENA [Suspect]
     Indication: MENORRHAGIA
     Dosage: 20 MICROGRAM/DAY, CONT, INTRA-UTERINE
     Route: 015
     Dates: start: 20030727

REACTIONS (4)
  - BLINDNESS [None]
  - DEMYELINATION [None]
  - MULTIPLE SCLEROSIS [None]
  - OPTIC NEURITIS [None]
